FAERS Safety Report 11514179 (Version 2)
Quarter: 2015Q3

REPORT INFORMATION
  Report Type: Spontaneous
  Country: BR (occurrence: BR)
  Receive Date: 20150916
  Receipt Date: 20150923
  Transmission Date: 20151125
  Serious: Yes (Other)
  Sender: FDA-Public Use
  Company Number: PHHY2015BR111222

PATIENT
  Age: 73 Year
  Sex: Female
  Weight: 80 kg

DRUGS (2)
  1. DIOVAN TRIPLE [Suspect]
     Active Substance: AMLODIPINE BESYLATE\HYDROCHLOROTHIAZIDE\VALSARTAN
     Indication: HYPERTENSION
     Dosage: 1 DF (160/5/12.5 MG), QD
     Route: 048
  2. PRESSAC [Concomitant]
     Indication: HYPERTENSION
     Dosage: UNK
     Route: 065

REACTIONS (6)
  - Blood pressure increased [Unknown]
  - Emotional distress [Not Recovered/Not Resolved]
  - Movement disorder [Unknown]
  - Diabetes mellitus [Not Recovered/Not Resolved]
  - Malaise [Not Recovered/Not Resolved]
  - Chronic gastritis [Unknown]
